FAERS Safety Report 9385458 (Version 1)
Quarter: 2013Q3

REPORT INFORMATION
  Report Type: Spontaneous
  Country: US (occurrence: US)
  Receive Date: 20130705
  Receipt Date: 20130705
  Transmission Date: 20140515
  Serious: No
  Sender: FDA-Public Use
  Company Number: US-009507513-1307USA001160

PATIENT
  Age: 49 Year
  Sex: Male
  Weight: 53.52 kg

DRUGS (3)
  1. PEGINTRON [Suspect]
     Dosage: REDIPEN, 80MCG/0.5 ML
     Route: 058
  2. REBETOL [Suspect]
     Route: 048
  3. BUPROPION HYDROCHLORIDE [Concomitant]

REACTIONS (2)
  - Nausea [Unknown]
  - Headache [Unknown]
